FAERS Safety Report 22524681 (Version 1)
Quarter: 2023Q2

REPORT INFORMATION
  Report Type: Spontaneous
  Country: KR (occurrence: KR)
  Receive Date: 20230606
  Receipt Date: 20230606
  Transmission Date: 20230721
  Serious: Yes (Hospitalization)
  Sender: FDA-Public Use
  Company Number: KR-ORGANON-O2305KOR003158

PATIENT
  Age: 36 Year
  Sex: Male
  Weight: 70.4 kg

DRUGS (6)
  1. COZAAR [Suspect]
     Active Substance: LOSARTAN POTASSIUM
     Indication: Arteriosclerosis coronary artery
     Dosage: 1 FORMUATION, QD
     Route: 048
     Dates: start: 20171212, end: 20180111
  2. CLOPIDOGREL BISULFATE [Suspect]
     Active Substance: CLOPIDOGREL BISULFATE
     Indication: Angina unstable
     Dosage: 600 MILLIGRAM, QD
     Dates: start: 20171212
  3. ASPIRIN [Suspect]
     Active Substance: ASPIRIN
     Indication: Angina unstable
     Dosage: 100 MILLIGRAM, QD
     Dates: start: 20171212
  4. SIMVASTATIN [Concomitant]
     Active Substance: SIMVASTATIN
     Indication: Arteriosclerosis coronary artery
     Dosage: 0.5 FORMULATION, QD
     Route: 048
     Dates: start: 20171212, end: 20180111
  5. SIMVASTATIN [Concomitant]
     Active Substance: SIMVASTATIN
     Dosage: 0.5 FORMULATION, QD
     Route: 048
     Dates: start: 20181112
  6. DILTIAZEM HYDROCHLORIDE [Concomitant]
     Active Substance: DILTIAZEM HYDROCHLORIDE
     Indication: Arteriosclerosis coronary artery
     Dosage: 0.5 FORMULATION, QD
     Route: 048
     Dates: start: 20180112

REACTIONS (1)
  - Coronary artery occlusion [Recovered/Resolved]

NARRATIVE: CASE EVENT DATE: 20180701
